FAERS Safety Report 5234121-0 (Version None)
Quarter: 2007Q1

REPORT INFORMATION
  Report Type: 
  Country: None (occurrence: None)
  Receive Date: 20070208
  Receipt Date: 20070201
  Transmission Date: 20070707
  Serious: Yes (Hospitalization, Other)
  Sender: FDA-Public Use
  Company Number: US-PFIZER INC-A123617

PATIENT
  Sex: Male
  Weight: 117.9 kg

DRUGS (9)
  1. ZOLOFT [Suspect]
     Indication: GENERALISED ANXIETY DISORDER
  2. LITHIUM CARBONATE [Suspect]
  3. NARDIL [Suspect]
     Indication: GENERALISED ANXIETY DISORDER
     Dosage: DAILY DOSE:15MG
     Route: 048
  4. PROZAC [Suspect]
     Indication: GENERALISED ANXIETY DISORDER
  5. EFFEXOR XR [Suspect]
     Indication: BIPOLAR DISORDER
     Dosage: DAILY DOSE:375MG
  6. PAXIL [Suspect]
     Indication: GENERALISED ANXIETY DISORDER
  7. TRANYLCYPROMINE SULFATE [Concomitant]
     Indication: GENERALISED ANXIETY DISORDER
     Route: 065
  8. ALL OTHER THERAPEUTIC PRODUCTS [Concomitant]
     Route: 065
  9. EFFEXOR [Concomitant]
     Indication: GENERALISED ANXIETY DISORDER

REACTIONS (10)
  - APATHY [None]
  - BIPOLAR DISORDER [None]
  - CARDIAC DISORDER [None]
  - COORDINATION ABNORMAL [None]
  - DIABETES MELLITUS NON-INSULIN-DEPENDENT [None]
  - DRUG INEFFECTIVE [None]
  - PAIN [None]
  - SUICIDAL IDEATION [None]
  - WEIGHT DECREASED [None]
  - WEIGHT INCREASED [None]
